FAERS Safety Report 9221682 (Version 2)
Quarter: 2013Q2

REPORT INFORMATION
  Report Type: Spontaneous
  Country: IT (occurrence: IT)
  Receive Date: 20130410
  Receipt Date: 20130425
  Transmission Date: 20140414
  Serious: Yes (Hospitalization)
  Sender: FDA-Public Use
  Company Number: IT-JNJFOC-20130400758

PATIENT
  Age: 64 Year
  Sex: Male

DRUGS (2)
  1. SERENASE [Suspect]
     Indication: MOOD ALTERED
     Dosage: PATIENT TOOK HALF BOTTLE OF HALOPERIDOL.
     Route: 048
     Dates: start: 20130320, end: 20130320
  2. SERENASE [Suspect]
     Indication: MOOD ALTERED
     Route: 048

REACTIONS (7)
  - Suicide attempt [Recovered/Resolved]
  - Dizziness [Recovered/Resolved]
  - Drug abuse [Recovered/Resolved]
  - Headache [Recovered/Resolved]
  - Major depression [Unknown]
  - Abdominal distension [Unknown]
  - Abdominal pain [Unknown]
